FAERS Safety Report 10043503 (Version 2)
Quarter: 2014Q2

REPORT INFORMATION
  Report Type: Report from Study
  Country: BE (occurrence: BE)
  Receive Date: 20140328
  Receipt Date: 20140418
  Transmission Date: 20141212
  Serious: Yes (Hospitalization, Other)
  Sender: FDA-Public Use
  Company Number: BE-AMGEN-BELCT2014022146

PATIENT
  Age: 80 Year
  Sex: Male

DRUGS (3)
  1. ETANERCEPT [Suspect]
     Indication: RHEUMATOID ARTHRITIS
     Dosage: 25 MG, 2 TIMES/WK
     Route: 058
     Dates: start: 20021011
  2. PLAQUENIL                          /00072602/ [Concomitant]
     Dosage: 200 MG, QD
     Route: 048
     Dates: start: 20031226, end: 20040105
  3. MEDROL                             /00049601/ [Concomitant]
     Dosage: 4 MG, QD
     Route: 048
     Dates: start: 20020402

REACTIONS (1)
  - Osteonecrosis [Recovered/Resolved]
